FAERS Safety Report 4587454-5 (Version None)
Quarter: 2005Q1

REPORT INFORMATION
  Report Type: 
  Country: None (occurrence: None)
  Receive Date: 20050215
  Receipt Date: 20050128
  Transmission Date: 20050727
  Serious: Yes (Death, Hospitalization)
  Sender: FDA-Public Use
  Company Number: S04-DEN-04699-01

PATIENT
  Age: 87 Year
  Sex: Male

DRUGS (12)
  1. AKARIN (CITALOPRAM) [Suspect]
     Indication: DEPRESSION
     Dosage: 10 MG QD PO
     Route: 048
     Dates: start: 20040817, end: 20040826
  2. CENTYL MED KALIUMKLORID [Suspect]
     Dosage: 1 BID PO
     Route: 048
     Dates: start: 20040101, end: 20040826
  3. CORODIL (ENALAPRIL) [Concomitant]
  4. DURA-ZOK (METOPROLOL) [Concomitant]
  5. IMOZOP (ZOPICLONE) [Concomitant]
  6. LOCOID (HYDROCORTIZONE BUTYRATE) [Concomitant]
  7. MAGNYL (ACETYLSLICYLIC ACID) [Concomitant]
  8. XATRAL UNO (ALFUZOSIN) [Concomitant]
  9. MULTI-VITAMINS [Concomitant]
  10. HALOPERIDOL [Concomitant]
  11. FENEMAL (PHENOBARBITAL) [Concomitant]
  12. LOSEC (OMEPRAZOLE) [Concomitant]

REACTIONS (13)
  - BLOOD CALCIUM DECREASED [None]
  - BLOOD OSMOLARITY DECREASED [None]
  - BLOOD POTASSIUM DECREASED [None]
  - CEREBRAL ATROPHY [None]
  - CIRCULATORY COLLAPSE [None]
  - CONFUSIONAL STATE [None]
  - DRUG INTERACTION [None]
  - GASTROINTESTINAL HAEMORRHAGE [None]
  - HAEMOGLOBIN DECREASED [None]
  - HYPONATRAEMIA [None]
  - PLATELET COUNT DECREASED [None]
  - RESPIRATORY DISORDER [None]
  - SYNCOPE [None]
